FAERS Safety Report 14014007 (Version 1)
Quarter: 2017Q3

REPORT INFORMATION
  Report Type: Spontaneous
  Country: IT (occurrence: IT)
  Receive Date: 20170926
  Receipt Date: 20170926
  Transmission Date: 20171128
  Serious: Yes (Other)
  Sender: FDA-Public Use
  Company Number: IT-BRISTOL-MYERS SQUIBB COMPANY-BMS-2017-083127

PATIENT
  Age: 92 Year
  Sex: Female

DRUGS (1)
  1. COUMADIN [Suspect]
     Active Substance: WARFARIN SODIUM
     Indication: ATRIAL FIBRILLATION
     Dosage: 22.5 MG, QWK
     Route: 048
     Dates: start: 20121205

REACTIONS (2)
  - Drug abuse [Unknown]
  - Haematoma [Unknown]

NARRATIVE: CASE EVENT DATE: 20170901
